FAERS Safety Report 11824476 (Version 1)
Quarter: 2015Q4

REPORT INFORMATION
  Report Type: Spontaneous
  Country: UA (occurrence: UA)
  Receive Date: 20151210
  Receipt Date: 20151210
  Transmission Date: 20160305
  Serious: Yes (Life-Threatening, Other)
  Sender: FDA-Public Use
  Company Number: UA-PFIZER INC-2015429168

PATIENT
  Age: 31 Year
  Sex: Female

DRUGS (2)
  1. DOSTINEX [Suspect]
     Active Substance: CABERGOLINE
     Indication: HYPERPROLACTINAEMIA
     Dosage: 0.25 MG, WEEKLY
     Route: 048
     Dates: start: 20151109, end: 20151121
  2. DOSTINEX [Suspect]
     Active Substance: CABERGOLINE
     Indication: MENSTRUAL DISORDER
     Dosage: 0.125 MG, WEEKLY
     Route: 048
     Dates: start: 20151122, end: 20151127

REACTIONS (6)
  - Suicidal ideation [Recovered/Resolved]
  - Compulsive shopping [Recovered/Resolved]
  - Panic attack [Recovered/Resolved]
  - Dizziness [Recovered/Resolved]
  - Asthenia [Recovered/Resolved]
  - Apathy [Recovered/Resolved]

NARRATIVE: CASE EVENT DATE: 20151111
